FAERS Safety Report 16534257 (Version 1)
Quarter: 2019Q3

REPORT INFORMATION
  Report Type: Spontaneous
  Country: US (occurrence: US)
  Receive Date: 20190704
  Receipt Date: 20190704
  Transmission Date: 20191004
  Serious: Yes (Disabling)
  Sender: FDA-Public Use
  Company Number: None

PATIENT
  Age: 5 Year
  Sex: Female
  Weight: 27 kg

DRUGS (1)
  1. EQUATE RESTORE PM NIGHTTIME LUBRICANT EYE [Suspect]
     Active Substance: MINERAL OIL\PETROLATUM
     Indication: DRY EYE
     Route: 047
     Dates: start: 20190201, end: 20190301

REACTIONS (2)
  - Blindness transient [None]
  - Burning sensation [None]

NARRATIVE: CASE EVENT DATE: 20190201
